FAERS Safety Report 9845353 (Version 1)
Quarter: 2014Q1

REPORT INFORMATION
  Report Type: Spontaneous
  Country: US (occurrence: None)
  Receive Date: 20140123
  Receipt Date: 20140123
  Transmission Date: 20141002
  Serious: Yes (Other)
  Sender: FDA-Public Use
  Company Number: None

PATIENT
  Age: 62 Year
  Sex: Female
  Weight: 65.77 kg

DRUGS (1)
  1. SULFASALAZINE [Suspect]
     Indication: COLITIS ULCERATIVE
     Route: 048
     Dates: start: 20131224, end: 20140103

REACTIONS (7)
  - Influenza like illness [None]
  - Rash [None]
  - Pyrexia [None]
  - Fatigue [None]
  - Immobile [None]
  - Product substitution issue [None]
  - Economic problem [None]
